FAERS Safety Report 10304704 (Version 3)
Quarter: 2016Q2

REPORT INFORMATION
  Report Type: Report from Study
  Country: US (occurrence: US)
  Receive Date: 20140715
  Receipt Date: 20160405
  Transmission Date: 20160815
  Serious: No
  Sender: FDA-Public Use
  Company Number: US-AMGEN-USASP2014052303

PATIENT
  Age: 83 Year
  Sex: Female

DRUGS (3)
  1. FOSAMAX [Suspect]
     Active Substance: ALENDRONATE SODIUM
     Indication: SINUS DISORDER
     Dosage: UNK
     Route: 065
  2. ENBREL [Suspect]
     Active Substance: ETANERCEPT
     Indication: RHEUMATOID ARTHRITIS
     Dosage: 50 MG EVERY OTHER WEEK
     Route: 065
     Dates: start: 20130609
  3. ENBREL [Suspect]
     Active Substance: ETANERCEPT
     Dosage: 50 MG, QWK
     Route: 065
     Dates: start: 2013

REACTIONS (10)
  - Sleep disorder due to general medical condition, insomnia type [Not Recovered/Not Resolved]
  - Dizziness [Unknown]
  - Adverse drug reaction [Not Recovered/Not Resolved]
  - Injection site pain [Not Recovered/Not Resolved]
  - Restlessness [Not Recovered/Not Resolved]
  - Abdominal discomfort [Not Recovered/Not Resolved]
  - Eructation [Not Recovered/Not Resolved]
  - Sinus disorder [Unknown]
  - Confusional state [Unknown]
  - Vertigo [Unknown]

NARRATIVE: CASE EVENT DATE: 20140709
